FAERS Safety Report 8959979 (Version 1)
Quarter: 2012Q4

REPORT INFORMATION
  Report Type: Report from Study
  Country: US (occurrence: US)
  Receive Date: 20121211
  Receipt Date: 20121211
  Transmission Date: 20130627
  Serious: Yes (Hospitalization)
  Sender: FDA-Public Use
  Company Number: US-TEVA-374644USA

PATIENT
  Age: 48 Year
  Sex: Female
  Weight: 192.4 kg

DRUGS (12)
  1. METHOTREXATE [Suspect]
     Indication: RHEUMATOID ARTHRITIS
     Dosage: 2.1429 Milligram Daily;
     Dates: start: 20080719
  2. OCRELIZUMAB [Suspect]
     Indication: RHEUMATOID ARTHRITIS
     Dosage: last dose prior to SAE:  15-Apr-2008
     Route: 042
     Dates: start: 20071012
  3. OCRELIZUMAB [Suspect]
     Dosage: Last dose prior to SAE:  30-Nov-2009
     Route: 042
     Dates: start: 20080912
  4. PREDNISONE [Suspect]
     Indication: RHEUMATOID ARTHRITIS
  5. NORTRIPTYLINE [Concomitant]
     Dates: start: 20060731
  6. PREDNISOLONE [Concomitant]
     Dates: start: 20070216
  7. MELOXICAM [Concomitant]
     Dates: start: 20070516
  8. FOLIC ACID [Concomitant]
     Dates: start: 20080104
  9. PARACETAMOL [Concomitant]
     Dates: start: 20100329
  10. KETOROLAC [Concomitant]
  11. BENZATHINE BENZYLPENICILLIN [Concomitant]
  12. CEFUROXIME [Concomitant]

REACTIONS (1)
  - Meningitis [Recovered/Resolved]
